FAERS Safety Report 16070096 (Version 2)
Quarter: 2019Q1

REPORT INFORMATION
  Report Type: Spontaneous
  Country: US (occurrence: US)
  Receive Date: 20190314
  Receipt Date: 20190316
  Transmission Date: 20190418
  Serious: No
  Sender: FDA-Public Use
  Company Number: US-TEVA-2019-US-1012782

PATIENT
  Sex: Female

DRUGS (3)
  1. ESTRADIOL TEVA TABLET [Suspect]
     Active Substance: ESTRADIOL
     Dosage: 2 MILLIGRAM DAILY;
     Route: 065
  2. ESTRADIOL TEVA TABLET [Suspect]
     Active Substance: ESTRADIOL
     Dosage: 1.5 MILLIGRAM DAILY; 1-1/2 MG OF ESTRADIOL (BY TAKING ONE 1-MG TABLET PLUS ONE-HALF OF A 1-MG TABLET
     Route: 065
  3. ESTRADIOL TEVA TABLET [Suspect]
     Active Substance: ESTRADIOL
     Dosage: 1 MILLIGRAM DAILY;
     Route: 065

REACTIONS (2)
  - Product substitution issue [None]
  - Drug effect incomplete [Unknown]
